FAERS Safety Report 4591500-2 (Version None)
Quarter: 2005Q1

REPORT INFORMATION
  Report Type: 
  Country: None (occurrence: None)
  Receive Date: 20050222
  Receipt Date: 20050209
  Transmission Date: 20050727
  Serious: Yes (Other)
  Sender: FDA-Public Use
  Company Number: 2005007863

PATIENT
  Age: 57 Year
  Sex: Male

DRUGS (1)
  1. XALATAN [Suspect]
     Indication: GLAUCOMA
     Dosage: 1 DROP (NOCTE), INTRAOCU
     Route: 031
     Dates: start: 20031117, end: 20050106

REACTIONS (2)
  - KERATITIS [None]
  - OCULAR HYPERAEMIA [None]
